FAERS Safety Report 11584579 (Version 2)
Quarter: 2015Q4

REPORT INFORMATION
  Report Type: Report from Study
  Country: US (occurrence: US)
  Receive Date: 20151001
  Receipt Date: 20151105
  Transmission Date: 20160304
  Serious: Yes (Congenital Anomaly, Other)
  Sender: FDA-Public Use
  Company Number: US-VIIV HEALTHCARE LIMITED-US2015GSK139429

PATIENT
  Age: 0 Year
  Sex: Female

DRUGS (2)
  1. KALETRA [Suspect]
     Active Substance: LOPINAVIR\RITONAVIR
     Indication: HIV INFECTION
     Dosage: UNK
     Route: 064
     Dates: start: 20150121
  2. LAMIVUDINE. [Suspect]
     Active Substance: LAMIVUDINE
     Indication: HIV INFECTION
     Dosage: UNK
     Route: 064
     Dates: start: 20150121

REACTIONS (9)
  - Ventricular septal defect [Unknown]
  - Cleft palate [Unknown]
  - Foetal chromosome abnormality [Unknown]
  - Congenital coronary artery malformation [Unknown]
  - Renal fusion anomaly [Unknown]
  - Foetal growth restriction [Unknown]
  - Foetal exposure during pregnancy [Unknown]
  - Small for dates baby [Unknown]
  - Renal hypoplasia [Unknown]

NARRATIVE: CASE EVENT DATE: 20150205
